FAERS Safety Report 8778140 (Version 2)
Quarter: 2013Q1

REPORT INFORMATION
  Report Type: Spontaneous
  Country: US (occurrence: US)
  Receive Date: 20120911
  Receipt Date: 20130204
  Transmission Date: 20140127
  Serious: Yes (Hospitalization)
  Sender: FDA-Public Use
  Company Number: US-BAYER-2012-093819

PATIENT
  Age: 21 Year
  Sex: Female
  Weight: 72.56 kg

DRUGS (9)
  1. YASMIN [Suspect]
     Dosage: UNK
     Dates: start: 1999, end: 2004
  2. ADVIL [Concomitant]
     Indication: PAIN
     Dosage: 200 MG, UNK
  3. VITAMIN C [Concomitant]
     Indication: VITAMIN SUPPLEMENTATION
  4. MULTI-VITAMIN [Concomitant]
     Indication: VITAMIN SUPPLEMENTATION
  5. ASTHMA-SPRAY [Concomitant]
     Dosage: UNK
     Dates: start: 2000
  6. IBUPROFEN [Concomitant]
     Dosage: 200 MG, EIGHT OF THEM A DAY SINCE SHE HAS BEEN SICK
  7. CIPROFLOXACIN [Concomitant]
  8. ROCEPHIN [Concomitant]
     Dosage: RECEIVED FOR 6 DAYS
  9. MOTRIN [Concomitant]
     Dosage: 600 MG, UNK
     Route: 048

REACTIONS (9)
  - Complex regional pain syndrome [None]
  - Deep vein thrombosis [None]
  - Pelvic venous thrombosis [None]
  - Deep vein thrombosis [None]
  - Deep vein thrombosis [None]
  - Injury [None]
  - Pain [None]
  - Anxiety [None]
  - Depression [None]
